FAERS Safety Report 22118261 (Version 1)
Quarter: 2023Q1

REPORT INFORMATION
  Report Type: Spontaneous
  Country: US (occurrence: US)
  Receive Date: 20230321
  Receipt Date: 20230321
  Transmission Date: 20230418
  Serious: Yes (Life-Threatening, Other)
  Sender: FDA-Public Use
  Company Number: US-drreddys-SPO/USA/23/0162505

PATIENT
  Age: 57 Year
  Sex: Male

DRUGS (6)
  1. HEPARIN SODIUM [Suspect]
     Active Substance: HEPARIN SODIUM
     Indication: Electrocardiogram ST segment elevation
     Dosage: UNFRACTIONATED HEPARIN INFUSION
  2. HEPARIN SODIUM [Suspect]
     Active Substance: HEPARIN SODIUM
     Indication: Chest pain
  3. CLOPIDOGREL BISULFATE [Concomitant]
     Active Substance: CLOPIDOGREL BISULFATE
     Indication: Electrocardiogram ST segment elevation
  4. CLOPIDOGREL BISULFATE [Concomitant]
     Active Substance: CLOPIDOGREL BISULFATE
     Indication: Chest pain
  5. ASPIRIN [Concomitant]
     Active Substance: ASPIRIN
     Indication: Chest pain
  6. ASPIRIN [Concomitant]
     Active Substance: ASPIRIN
     Indication: Electrocardiogram ST segment elevation

REACTIONS (6)
  - Acute myocardial infarction [Unknown]
  - Cardiac ventricular thrombosis [Unknown]
  - Disseminated intravascular coagulation [Unknown]
  - Pulmonary embolism [Unknown]
  - Heparin-induced thrombocytopenia [Recovering/Resolving]
  - Product use in unapproved indication [Unknown]
